FAERS Safety Report 20578651 (Version 2)
Quarter: 2022Q1

REPORT INFORMATION
  Report Type: Spontaneous
  Country: CN (occurrence: CN)
  Receive Date: 20220310
  Receipt Date: 20220315
  Transmission Date: 20220424
  Serious: Yes (Other)
  Sender: FDA-Public Use
  Company Number: CN-MLMSERVICE-20220223-3392813-1

PATIENT
  Age: 49 Year
  Sex: Female

DRUGS (3)
  1. IRINOTECAN HYDROCHLORIDE [Suspect]
     Active Substance: IRINOTECAN HYDROCHLORIDE
     Indication: Gastric cancer stage IV
     Dosage: 200 MG, CYCLIC (D1)
     Dates: start: 202003
  2. PYROTINIB [Suspect]
     Active Substance: PYROTINIB
     Indication: Gastric cancer stage IV
     Dosage: 400 MG, 1X/DAY
     Dates: start: 202003
  3. CAPECITABINE [Suspect]
     Active Substance: CAPECITABINE
     Indication: Gastric cancer stage IV
     Dosage: 60 MG, 2X/DAY
     Dates: start: 202003

REACTIONS (2)
  - Myelosuppression [Unknown]
  - Diarrhoea [Unknown]

NARRATIVE: CASE EVENT DATE: 20200101
